FAERS Safety Report 11653617 (Version 1)
Quarter: 2015Q4

REPORT INFORMATION
  Report Type: Spontaneous
  Country: IN (occurrence: IN)
  Receive Date: 20151022
  Receipt Date: 20151022
  Transmission Date: 20160304
  Serious: Yes (Death, Hospitalization)
  Sender: FDA-Public Use
  Company Number: IN-PFIZER INC-2015342192

PATIENT
  Age: 63 Year
  Sex: Female

DRUGS (1)
  1. SUTENT [Suspect]
     Active Substance: SUNITINIB MALATE
     Indication: METASTATIC RENAL CELL CARCINOMA
     Dosage: 12.5 MG, 2X/DAY
     Route: 048
     Dates: start: 20150416

REACTIONS (5)
  - Malaise [Unknown]
  - Disease progression [Fatal]
  - Metastatic renal cell carcinoma [Fatal]
  - Feeding disorder [Unknown]
  - Feeling cold [Unknown]

NARRATIVE: CASE EVENT DATE: 2015
